FAERS Safety Report 5587853-9 (Version None)
Quarter: 2007Q4

REPORT INFORMATION
  Report Type: 
  Country: None (occurrence: None)
  Receive Date: 20071211
  Receipt Date: 20070928
  Transmission Date: 20080405
  Serious: No
  Sender: FDA-Public Use
  Company Number: 002#2#2007-00234

PATIENT
  Age: 74 Year
  Sex: Female
  Weight: 54 kg

DRUGS (10)
  1. NEUPRO [Suspect]
     Dosage: 4MG/24H,1 IN 1 D,TRANSDERMAL
     Route: 062
     Dates: start: 20070814
  2. CARBADOPA/LEVADOPA [Concomitant]
  3. PARLODEL [Concomitant]
  4. SYMMETREL [Concomitant]
  5. LORAZEPAM [Concomitant]
  6. COLACE [Concomitant]
  7. ZANTAC [Concomitant]
  8. LIDOCAINE [Concomitant]
  9. UNKNOWN BLOOD PRESSURE MEDICATION [Concomitant]
  10. ANTI-OSTEOPOROSIS MEDICATION [Concomitant]

REACTIONS (1)
  - RASH ERYTHEMATOUS [None]
